FAERS Safety Report 5509166-3 (Version None)
Quarter: 2007Q4

REPORT INFORMATION
  Report Type: 
  Country: None (occurrence: None)
  Receive Date: 20071031
  Receipt Date: 20070701
  Transmission Date: 20080405
  Serious: No
  Sender: FDA-Public Use
  Company Number: 2007PV033081

PATIENT
  Age: 55 Year
  Sex: Female

DRUGS (4)
  1. SYMLIN [Suspect]
     Dosage: 60 MCG; QD; SC; 60 MCG; BID; SC
     Route: 058
     Dates: start: 20070629, end: 20070629
  2. SYMLIN [Suspect]
     Dosage: 60 MCG; QD; SC; 60 MCG; BID; SC
     Route: 058
     Dates: start: 20070630, end: 20070630
  3. SYMLIN [Suspect]
     Dosage: 60 MCG; QD; SC; 60 MCG; BID; SC
     Route: 058
     Dates: start: 20070701
  4. METFORMIN HCL [Concomitant]

REACTIONS (1)
  - NAUSEA [None]
